FAERS Safety Report 9938536 (Version 1)
Quarter: 2014Q1

REPORT INFORMATION
  Report Type: Spontaneous
  Country: FR (occurrence: FR)
  Receive Date: 20140303
  Receipt Date: 20140303
  Transmission Date: 20141002
  Serious: Yes (Other)
  Sender: FDA-Public Use
  Company Number: FR-AMGEN-FRASP2014013544

PATIENT
  Age: 72 Year
  Sex: Male

DRUGS (3)
  1. ARANESP [Suspect]
     Indication: MYELODYSPLASTIC SYNDROME
     Dosage: 300 MUG, UNK
     Route: 042
     Dates: start: 20130214
  2. VIDAZA [Concomitant]
     Indication: MYELODYSPLASTIC SYNDROME
     Dosage: 75 MG/M2, UNK
     Route: 058
  3. AZACITIDINE [Concomitant]

REACTIONS (2)
  - Amaurosis [Not Recovered/Not Resolved]
  - Retinal vein occlusion [Not Recovered/Not Resolved]
